FAERS Safety Report 16243093 (Version 1)
Quarter: 2019Q2

REPORT INFORMATION
  Report Type: Spontaneous
  Country: GB (occurrence: GB)
  Receive Date: 20190426
  Receipt Date: 20190426
  Transmission Date: 20190711
  Serious: Yes (Hospitalization)
  Sender: FDA-Public Use
  Company Number: GB-TEVA-2019-GB-1042185

PATIENT
  Age: 82 Year

DRUGS (20)
  1. DOXAZOSIN [Suspect]
     Active Substance: DOXAZOSIN\DOXAZOSIN MESYLATE
     Dosage: 1 MILLIGRAM DAILY;
  2. BISOPROLOL [Suspect]
     Active Substance: BISOPROLOL
     Dosage: 2.5 MILLIGRAM DAILY;
  3. FUROSEMIDE. [Suspect]
     Active Substance: FUROSEMIDE
     Dosage: MORNING.
  4. PARACETAMOL [Concomitant]
     Active Substance: ACETAMINOPHEN
  5. CO-BENELDOPA [Concomitant]
     Active Substance: BENSERAZIDE HYDROCHLORIDE\LEVODOPA
  6. GLYCERYL TRINITRATE [Concomitant]
     Active Substance: NITROGLYCERIN
     Route: 060
  7. SPIRONOLACTONE. [Suspect]
     Active Substance: SPIRONOLACTONE
     Dosage: 25 MILLIGRAM DAILY;
  8. SALBUTAMOL [Concomitant]
     Active Substance: ALBUTEROL
     Route: 055
  9. GLYCEROL [Concomitant]
     Active Substance: GLYCERIN
  10. MAIZE STARCH [Concomitant]
  11. DOCUSATE [Concomitant]
     Active Substance: DOCUSATE
  12. DARIFENACIN. [Concomitant]
     Active Substance: DARIFENACIN
  13. WARFARIN [Concomitant]
     Active Substance: WARFARIN
  14. FOSTAIR [Concomitant]
     Active Substance: BECLOMETHASONE\FORMOTEROL
     Dosage: 200 MICROGRAMS/ DOSE / 6 MICROGRAMS
     Route: 055
  15. BISACODYL. [Concomitant]
     Active Substance: BISACODYL
  16. RAMIPRIL. [Suspect]
     Active Substance: RAMIPRIL
     Dosage: 1.25 MILLIGRAM DAILY; MORNING
  17. ISOSORBIDE MONONITRATE. [Suspect]
     Active Substance: ISOSORBIDE MONONITRATE
     Dosage: 40 MILLIGRAM DAILY;
  18. LACTULOSE. [Concomitant]
     Active Substance: LACTULOSE
  19. SERTRALINE [Concomitant]
     Active Substance: SERTRALINE HYDROCHLORIDE
  20. TIOTROPIUM [Concomitant]
     Active Substance: TIOTROPIUM

REACTIONS (2)
  - Acute kidney injury [Recovering/Resolving]
  - Hypotension [Recovering/Resolving]
